FAERS Safety Report 12337045 (Version 2)
Quarter: 2016Q2

REPORT INFORMATION
  Report Type: Spontaneous
  Country: US (occurrence: US)
  Receive Date: 20160505
  Receipt Date: 20160624
  Transmission Date: 20160815
  Serious: Yes (Hospitalization)
  Sender: FDA-Public Use
  Company Number: PHEH2016US011007

PATIENT
  Age: 55 Year
  Sex: Male

DRUGS (5)
  1. COSENTYX [Suspect]
     Active Substance: SECUKINUMAB
     Dosage: UNK, QW
     Route: 058
     Dates: start: 20160506
  2. COSENTYX [Suspect]
     Active Substance: SECUKINUMAB
     Indication: PSORIASIS
     Dosage: UNK UKN, QW
     Route: 058
     Dates: start: 20160316
  3. COSENTYX [Suspect]
     Active Substance: SECUKINUMAB
     Dosage: UNK, QW
     Route: 058
     Dates: start: 20160429
  4. COSENTYX [Suspect]
     Active Substance: SECUKINUMAB
     Dosage: UNK, QW
     Route: 058
     Dates: start: 20160330
  5. COSENTYX [Suspect]
     Active Substance: SECUKINUMAB
     Dosage: UNK UKN, QW
     Route: 058
     Dates: start: 20160323

REACTIONS (5)
  - Psoriasis [Unknown]
  - Malaise [Unknown]
  - Pneumonia [Recovered/Resolved]
  - Ear infection [Unknown]
  - Otitis media [Recovering/Resolving]

NARRATIVE: CASE EVENT DATE: 20160403
